FAERS Safety Report 5020943-8 (Version None)
Quarter: 2006Q2

REPORT INFORMATION
  Report Type: 
  Country: None (occurrence: None)
  Receive Date: 20060608
  Receipt Date: 20050329
  Transmission Date: 20061013
  Serious: Yes (Other)
  Sender: FDA-Public Use
  Company Number: 2005UW04889

PATIENT
  Age: 64 Year
  Sex: Female
  Weight: 67.1 kg

DRUGS (12)
  1. SEROQUEL [Suspect]
     Indication: VULVITIS
     Route: 048
     Dates: start: 19990101
  2. BLOOD PRESSURE MEDICATION [Concomitant]
  3. KETAMINE HCL [Concomitant]
     Route: 061
  4. DOXEPIN [Concomitant]
     Dosage: 100 MG UP TO QID
  5. MIRALAX [Concomitant]
  6. ATIVAN [Concomitant]
     Indication: NERVOUSNESS
     Dosage: 2 MG UP TO TID
  7. AMBIEN [Concomitant]
     Indication: SLEEP DISORDER
  8. LIDOCAINE [Concomitant]
     Indication: VULVOVAGINAL DISCOMFORT
  9. BUMEX [Concomitant]
     Indication: OEDEMA
  10. INDERAL [Concomitant]
  11. LIPITOR [Concomitant]
  12. MONOPRIL [Concomitant]

REACTIONS (3)
  - FALL [None]
  - HALLUCINATION [None]
  - LOSS OF CONSCIOUSNESS [None]
